FAERS Safety Report 12876725 (Version 1)
Quarter: 2016Q4

REPORT INFORMATION
  Report Type: Spontaneous
  Country: US (occurrence: US)
  Receive Date: 20161021
  Receipt Date: 20161021
  Transmission Date: 20170207
  Serious: Yes (Hospitalization)
  Sender: FDA-Public Use
  Company Number: None

PATIENT
  Age: 59 Year
  Sex: Male
  Weight: 70.5 kg

DRUGS (1)
  1. MELOXICAM. [Suspect]
     Active Substance: MELOXICAM
     Indication: PAIN
     Route: 048
     Dates: start: 20160309, end: 20161015

REACTIONS (5)
  - Acute prerenal failure [None]
  - Toxicity to various agents [None]
  - Hypovolaemia [None]
  - Mental status changes [None]
  - Acute kidney injury [None]

NARRATIVE: CASE EVENT DATE: 20161015
